FAERS Safety Report 4540071-5 (Version None)
Quarter: 2004Q4

REPORT INFORMATION
  Report Type: 
  Country: None (occurrence: None)
  Receive Date: 20041223
  Receipt Date: 20041210
  Transmission Date: 20050328
  Serious: Yes (Other)
  Sender: FDA-Public Use
  Company Number: 2004112624

PATIENT
  Sex: Female

DRUGS (4)
  1. DETROL LA [Suspect]
     Indication: ILL-DEFINED DISORDER
     Dosage: DAILY INTERVAL: EVERY DAY
     Dates: start: 20030101
  2. INSULIN [Concomitant]
  3. METOPROLOL [Concomitant]
  4. PRINZIDE [Concomitant]

REACTIONS (3)
  - FEELING ABNORMAL [None]
  - HEADACHE [None]
  - PNEUMONIA MYCOPLASMAL [None]
